FAERS Safety Report 4326344-X (Version None)
Quarter: 2004Q1

REPORT INFORMATION
  Report Type: 
  Country: None (occurrence: None)
  Receive Date: 20040329
  Receipt Date: 20040329
  Transmission Date: 20041129
  Serious: Yes (Life-Threatening, Hospitalization)
  Sender: FDA-Public Use
  Company Number: None

PATIENT
  Age: 43 Year
  Sex: Male
  Weight: 93 kg

DRUGS (4)
  1. PROLEUKIN [Suspect]
     Indication: MALIGNANT MELANOMA
     Dosage: 56 MILLION Q8H X 14 IV
     Route: 042
     Dates: start: 20040319, end: 20040324
  2. ONDANSETRON HCL [Concomitant]
  3. DIPHENOXYLATE W/ATROPINE [Concomitant]
  4. PROCHLORPERAZINE [Concomitant]

REACTIONS (4)
  - DYSPNOEA [None]
  - MYOCARDIAL INFARCTION [None]
  - MYOCARDITIS [None]
  - VENTRICULAR EXTRASYSTOLES [None]
